FAERS Safety Report 7252442-7 (Version None)
Quarter: 2011Q1

REPORT INFORMATION
  Report Type: 
  Country: None (occurrence: None)
  Receive Date: 20110129
  Receipt Date: 20100106
  Transmission Date: 20110831
  Serious: No
  Sender: FDA-Public Use
  Company Number: US-ABBOTT-10P-163-0617757-00

PATIENT
  Sex: Female
  Weight: 65.83 kg

DRUGS (1)
  1. HUMIRA [Suspect]
     Indication: CROHN'S DISEASE
     Dates: start: 20091224

REACTIONS (5)
  - WEIGHT INCREASED [None]
  - ABDOMINAL DISTENSION [None]
  - SWELLING [None]
  - DIARRHOEA [None]
  - ALOPECIA [None]
